FAERS Safety Report 7379598-X (Version None)
Quarter: 2011Q1

REPORT INFORMATION
  Report Type: 
  Country: None (occurrence: None)
  Receive Date: 20110318
  Receipt Date: 20110309
  Transmission Date: 20110831
  Serious: Yes (Other)
  Sender: FDA-Public Use
  Company Number: DSU-2011-01739

PATIENT
  Age: 68 Year
  Sex: Female
  Weight: 61.2356 kg

DRUGS (3)
  1. BENICAR [Suspect]
     Indication: HYPERTENSION
     Dosage: 20 MG (20 MG, QD), PER ORAL
     Route: 048
     Dates: end: 20100101
  2. BENICAR HCT [Suspect]
     Indication: HYPERTENSION
     Dosage: 20/12.5 MG (QD), PER ORAL
     Route: 048
     Dates: start: 20110301, end: 20110306
  3. PLENDIL [Concomitant]

REACTIONS (4)
  - VOMITING [None]
  - COELIAC DISEASE [None]
  - DIARRHOEA [None]
  - NAUSEA [None]
